FAERS Safety Report 18525138 (Version 1)
Quarter: 2020Q4

REPORT INFORMATION
  Report Type: Spontaneous
  Country: US (occurrence: US)
  Receive Date: 20201120
  Receipt Date: 20201120
  Transmission Date: 20210114
  Serious: No
  Sender: FDA-Public Use
  Company Number: US-JNJFOC-20201123791

PATIENT
  Age: 87 Year
  Sex: Female
  Weight: 61.29 kg

DRUGS (1)
  1. TYLENOL 8HR [Suspect]
     Active Substance: ACETAMINOPHEN
     Indication: STENOSIS
     Dosage: TWO CAPLETS AT A TIME THREE TIMES A DAY
     Route: 048
     Dates: start: 20201103

REACTIONS (1)
  - Therapeutic product effect incomplete [Unknown]

NARRATIVE: CASE EVENT DATE: 20201103
